APPROVED DRUG PRODUCT: TRANDOLAPRIL
Active Ingredient: TRANDOLAPRIL
Strength: 4MG
Dosage Form/Route: TABLET;ORAL
Application: A078320 | Product #003
Applicant: INVAGEN PHARMACEUTICALS INC
Approved: Jun 12, 2007 | RLD: No | RS: No | Type: DISCN